FAERS Safety Report 16323607 (Version 2)
Quarter: 2019Q2

REPORT INFORMATION
  Report Type: Report from Study
  Country: CN (occurrence: CN)
  Receive Date: 20190517
  Receipt Date: 20190527
  Transmission Date: 20190711
  Serious: Yes (Hospitalization, Other)
  Sender: FDA-Public Use
  Company Number: CN-BEH-2019102403

PATIENT

DRUGS (6)
  1. MOXIFLOXACIN. [Suspect]
     Active Substance: MOXIFLOXACIN
     Indication: SKIN INFECTION
     Route: 065
  2. FUROSEMIDE. [Suspect]
     Active Substance: FUROSEMIDE
     Indication: SKIN INFECTION
     Route: 065
  3. ALBUMIN HUMAN (MBR) 20% [Suspect]
     Active Substance: ALBUMIN HUMAN
     Indication: SKIN INFECTION
     Route: 065
  4. MOXIFLOXACIN. [Suspect]
     Active Substance: MOXIFLOXACIN
     Indication: SOFT TISSUE INFECTION
  5. FUROSEMIDE. [Suspect]
     Active Substance: FUROSEMIDE
     Indication: SOFT TISSUE INFECTION
  6. ALBUMIN HUMAN (MBR) 20% [Suspect]
     Active Substance: ALBUMIN HUMAN
     Indication: SOFT TISSUE INFECTION

REACTIONS (4)
  - Blister [Unknown]
  - Skin erosion [Unknown]
  - Toxic epidermal necrolysis [Unknown]
  - Skin exfoliation [Unknown]
